FAERS Safety Report 21646352 (Version 1)
Quarter: 2022Q4

REPORT INFORMATION
  Report Type: Spontaneous
  Country: FR (occurrence: FR)
  Receive Date: 20221126
  Receipt Date: 20221126
  Transmission Date: 20230112
  Serious: Yes (Hospitalization, Other)
  Sender: FDA-Public Use
  Company Number: FR-ABBVIE-4214509

PATIENT
  Age: 68 Year
  Sex: Female

DRUGS (10)
  1. DEPAKOTE [Suspect]
     Active Substance: DIVALPROEX SODIUM
     Indication: Product used for unknown indication
     Dosage: 2 DROP, BID
     Route: 031
     Dates: start: 20210723, end: 202107
  2. MANNITOL [Suspect]
     Active Substance: MANNITOL
     Indication: Product used for unknown indication
     Dosage: IV NOS
     Dates: start: 20210723, end: 20210723
  3. INDOMETHACIN [Suspect]
     Active Substance: INDOMETHACIN
     Indication: Cataract operation
     Dosage: 3 DROP, TID
     Route: 031
     Dates: start: 20210722, end: 20221103
  4. AZITHROMYCIN [Suspect]
     Active Substance: AZITHROMYCIN
     Indication: Cataract operation
     Route: 031
     Dates: start: 20210722, end: 20210723
  5. BRIMONIDINE TARTRATE [Suspect]
     Active Substance: BRIMONIDINE TARTRATE
     Indication: Product used for unknown indication
     Dosage: 2 DROP, BID (DROP (1/12 MILLILITRE), 1 DROP MORNING AND EVENING
     Route: 031
     Dates: start: 20210723, end: 202107
  6. PILOCARPINE [Suspect]
     Active Substance: PILOCARPINE
     Indication: Product used for unknown indication
     Dosage: 2 DROP, BID
     Route: 031
     Dates: start: 20210723, end: 20210726
  7. LATANOPROST [Suspect]
     Active Substance: LATANOPROST
     Indication: Product used for unknown indication
     Dosage: 1 DROP, HS, DROP (1/12 MILLILITRE)
     Route: 031
     Dates: start: 20210723, end: 20210803
  8. DEXAMETHASONE SODIUM PHOSPHATE [Suspect]
     Active Substance: DEXAMETHASONE SODIUM PHOSPHATE
     Indication: Cataract operation
     Route: 031
     Dates: start: 20210722, end: 20210723
  9. POTASSIUM CHLORIDE [Suspect]
     Active Substance: POTASSIUM CHLORIDE
     Indication: Product used for unknown indication
     Dosage: 600 MG, BID
     Route: 048
     Dates: start: 20210723
  10. DIAMOX SEQUELS [Suspect]
     Active Substance: ACETAZOLAMIDE
     Indication: Ocular hypertension
     Dosage: 250 MG, QID
     Route: 048
     Dates: start: 20210726, end: 20210729

REACTIONS (1)
  - Acute generalised exanthematous pustulosis [Recovered/Resolved with Sequelae]

NARRATIVE: CASE EVENT DATE: 20210101
